FAERS Safety Report 7047358-5 (Version None)
Quarter: 2010Q4

REPORT INFORMATION
  Report Type: 
  Country: None (occurrence: None)
  Receive Date: 20101015
  Receipt Date: 20101005
  Transmission Date: 20110411
  Serious: Yes (Other)
  Sender: FDA-Public Use
  Company Number: BR-ROCHE-730615

PATIENT
  Sex: Male
  Weight: 87 kg

DRUGS (1)
  1. ROACUTAN [Suspect]
     Indication: ACNE
     Dosage: FREQUENCY: 0.7 MG/KG; STOP DATE: OCT 2010
     Route: 048
     Dates: start: 20100501

REACTIONS (5)
  - AMNESIA [None]
  - EDUCATIONAL PROBLEM [None]
  - IRRITABILITY [None]
  - MEMORY IMPAIRMENT [None]
  - PETIT MAL EPILEPSY [None]
